FAERS Safety Report 4715870-7 (Version None)
Quarter: 2005Q3

REPORT INFORMATION
  Report Type: 
  Country: None (occurrence: None)
  Receive Date: 20050713
  Receipt Date: 20050701
  Transmission Date: 20060218
  Serious: Yes (Other)
  Sender: FDA-Public Use
  Company Number: SUSI-2005-00529

PATIENT
  Age: 58 Year
  Sex: 0

DRUGS (1)
  1. DEXTROSTAT [Suspect]
     Indication: NARCOLEPSY
     Dosage: 40 MG DAILY

REACTIONS (1)
  - ACUTE MYOCARDIAL INFARCTION [None]
